FAERS Safety Report 25811152 (Version 1)
Quarter: 2025Q3

REPORT INFORMATION
  Report Type: Report from Study
  Country: US (occurrence: US)
  Receive Date: 20250917
  Receipt Date: 20250917
  Transmission Date: 20251020
  Serious: No
  Sender: SUNOVION
  Company Number: US-SUMITOMO PHARMA SWITZERLAND GMBH-2025SPA011537

PATIENT
  Age: 75 Year
  Sex: Male

DRUGS (19)
  1. ORGOVYX [Suspect]
     Active Substance: RELUGOLIX
     Indication: Prostate cancer
     Route: 048
  2. ORGOVYX [Suspect]
     Active Substance: RELUGOLIX
     Route: 048
  3. ASPIRIN [Concomitant]
     Active Substance: ASPIRIN
  4. AZELASTINE [Concomitant]
     Active Substance: AZELASTINE
  5. CETIRIZINE HYDROCHLORIDE [Concomitant]
     Active Substance: CETIRIZINE HYDROCHLORIDE
  6. DICLOFENAC [Concomitant]
     Active Substance: DICLOFENAC
  7. CLOPIDOGREL [Concomitant]
     Active Substance: CLOPIDOGREL BISULFATE
  8. FLUTICASONE [Concomitant]
     Active Substance: FLUTICASONE
  9. SALMETEROL [Concomitant]
     Active Substance: SALMETEROL
  10. FUROSEMIDE [Concomitant]
     Active Substance: FUROSEMIDE
  11. GABAPENTIN [Concomitant]
     Active Substance: GABAPENTIN
  12. GLUCOSAMINE [Concomitant]
     Active Substance: GLUCOSAMINE
  13. VITAMINS [Concomitant]
     Active Substance: VITAMINS
  14. NORTRIPTYLINE HYDROCHLORIDE [Concomitant]
     Active Substance: NORTRIPTYLINE HYDROCHLORIDE
  15. SODIUM CHLORIDE [Concomitant]
     Active Substance: SODIUM CHLORIDE
     Route: 045
  16. SIMVASTATIN [Concomitant]
     Active Substance: SIMVASTATIN
  17. TAMSULOSIN [Concomitant]
     Active Substance: TAMSULOSIN
  18. TRAZODONE HCL [Concomitant]
     Active Substance: TRAZODONE HYDROCHLORIDE
  19. ESCITALOPRAM [Concomitant]
     Active Substance: ESCITALOPRAM OXALATE

REACTIONS (1)
  - Fatigue [Unknown]
